FAERS Safety Report 5036480-0 (Version None)
Quarter: 2006Q2

REPORT INFORMATION
  Report Type: 
  Country: None (occurrence: None)
  Receive Date: 20060613
  Receipt Date: 20060221
  Transmission Date: 20061013
  Serious: Yes (Other)
  Sender: FDA-Public Use
  Company Number: US-JNJFOC-20060205311

PATIENT
  Age: 32 Year
  Sex: Male

DRUGS (2)
  1. HALDOL DECANOATE (HALOPERIDOL DECANOATE) INJECTION [Suspect]
     Indication: SCHIZOPHRENIA
     Dosage: 200 MG, IN 1 MONTH
  2. ANTIPSYCHOTIC (ANTIPSYCHOTICS) [Concomitant]

REACTIONS (1)
  - TARDIVE DYSKINESIA [None]
